FAERS Safety Report 17694144 (Version 1)
Quarter: 2020Q2

REPORT INFORMATION
  Report Type: Spontaneous
  Country: US (occurrence: US)
  Receive Date: 20200422
  Receipt Date: 20200422
  Transmission Date: 20200714
  Serious: Yes (Hospitalization, Other)
  Sender: FDA-Public Use
  Company Number: US-ABBVIE-20P-163-3238437-00

PATIENT
  Age: 7 Month
  Sex: Male
  Weight: 7.9 kg

DRUGS (8)
  1. AUGMENTIN [Concomitant]
     Active Substance: AMOXICILLIN\CLAVULANATE POTASSIUM
     Indication: WHEEZING
     Dosage: 600 MG-42.9 MG/5 ML ORAL, 2 ML TWO TIMES A DAY
     Route: 048
  2. SYNAGIS [Suspect]
     Active Substance: PALIVIZUMAB
     Indication: PREMATURE BABY
  3. BUDESONIDE. [Concomitant]
     Active Substance: BUDESONIDE
     Indication: BRONCHOPULMONARY DYSPLASIA
     Dosage: 0.5 MG/2 ML, 2 ML TWOT IMES A DAY
     Route: 055
  4. SYNAGIS [Suspect]
     Active Substance: PALIVIZUMAB
     Indication: LOW BIRTH WEIGHT BABY
     Route: 030
     Dates: start: 20191128, end: 20200325
  5. ALBUTEROL. [Concomitant]
     Active Substance: ALBUTEROL
     Indication: BRONCHOPULMONARY DYSPLASIA
     Dosage: 2.5 MG/3 ML, 3 ML FOUR TIMES A DAY AS NEEDED
     Route: 055
  6. AUGMENTIN [Concomitant]
     Active Substance: AMOXICILLIN\CLAVULANATE POTASSIUM
     Indication: BRONCHOPULMONARY DYSPLASIA
     Dosage: 600 MG-42.9 MG/5 ML ORAL, 2 ML TWO TIMES A DAY
     Route: 048
  7. SYNAGIS [Suspect]
     Active Substance: PALIVIZUMAB
     Indication: BRONCHOPULMONARY DYSPLASIA
  8. MULTIVITAMINES WITH IRON [Concomitant]
     Indication: PRODUCT USED FOR UNKNOWN INDICATION
     Dosage: 0.5 ML ONCE A DAY VIA FEEDING TUBE

REACTIONS (9)
  - Bronchiolitis [Unknown]
  - Rhinorrhoea [Unknown]
  - Dyspnoea [Recovered/Resolved]
  - Increased upper airway secretion [Unknown]
  - Tachypnoea [Recovered/Resolved]
  - Cough [Unknown]
  - Vomiting [Recovered/Resolved]
  - Respiratory tract congestion [Unknown]
  - Aspiration [Unknown]

NARRATIVE: CASE EVENT DATE: 20200131
